FAERS Safety Report 7145159-0 (Version None)
Quarter: 2010Q4

REPORT INFORMATION
  Report Type: 
  Country: None (occurrence: None)
  Receive Date: 20101208
  Receipt Date: 20101124
  Transmission Date: 20110411
  Serious: Yes (Other)
  Sender: FDA-Public Use
  Company Number: US-SANOFI-AVENTIS-2010SA069441

PATIENT
  Age: 65 Year
  Sex: Female
  Weight: 70 kg

DRUGS (8)
  1. PLAVIX [Suspect]
     Indication: STENT PLACEMENT
     Route: 048
     Dates: start: 20101025
  2. ASPIRIN [Concomitant]
  3. CYMBALTA [Concomitant]
  4. FAMOTIDINE [Concomitant]
  5. MULTI-VITAMINS [Concomitant]
  6. NEBIVOLOL [Concomitant]
  7. NITROGLYCERIN [Concomitant]
     Route: 060
  8. PRAVASTATIN [Concomitant]

REACTIONS (9)
  - CONDITION AGGRAVATED [None]
  - ERYTHEMA [None]
  - GASTROOESOPHAGEAL REFLUX DISEASE [None]
  - JOINT SWELLING [None]
  - MOBILITY DECREASED [None]
  - MONOPLEGIA [None]
  - OEDEMA PERIPHERAL [None]
  - PAIN [None]
  - RASH [None]
